FAERS Safety Report 13994710 (Version 1)
Quarter: 2017Q3

REPORT INFORMATION
  Report Type: Spontaneous
  Country: US (occurrence: None)
  Receive Date: 20170920
  Receipt Date: 20170920
  Transmission Date: 20171128
  Serious: Yes (Hospitalization)
  Sender: FDA-Public Use
  Company Number: None

PATIENT
  Age: 26 Year
  Sex: Male
  Weight: 82.55 kg

DRUGS (1)
  1. HALDOL DECANOATE [Suspect]
     Active Substance: HALOPERIDOL DECANOATE
     Indication: PSYCHOTIC DISORDER
     Route: 030
     Dates: start: 20170817

REACTIONS (5)
  - Dystonia [None]
  - Salivary hypersecretion [None]
  - Bradykinesia [None]
  - Extrapyramidal disorder [None]
  - Muscle rigidity [None]

NARRATIVE: CASE EVENT DATE: 20170818
